FAERS Safety Report 9409890 (Version 2)
Quarter: 2013Q3

REPORT INFORMATION
  Report Type: Spontaneous
  Country: US (occurrence: US)
  Receive Date: 20130719
  Receipt Date: 20130904
  Transmission Date: 20140515
  Serious: Yes (Other)
  Sender: FDA-Public Use
  Company Number: US-SANOFI-AVENTIS-2013SA072488

PATIENT
  Age: 74 Year
  Sex: Female
  Weight: 62 kg

DRUGS (1)
  1. AMBIEN [Suspect]
     Route: 048
     Dates: end: 20130324

REACTIONS (2)
  - Road traffic accident [Unknown]
  - Somnambulism [Unknown]
